FAERS Safety Report 10168295 (Version 2)
Quarter: 2014Q4

REPORT INFORMATION
  Report Type: Spontaneous
  Country: AR (occurrence: AR)
  Receive Date: 20140512
  Receipt Date: 20141003
  Transmission Date: 20150528
  Serious: Yes (Hospitalization)
  Sender: FDA-Public Use
  Company Number: AR-BIOMARINAP-AR-2014-103176

PATIENT
  Sex: Female

DRUGS (3)
  1. BENADRYL [Concomitant]
     Active Substance: DIPHENHYDRAMINE HYDROCHLORIDE
     Indication: PREMEDICATION
  2. VIMIZIM [Suspect]
     Active Substance: ELOSULFASE ALFA
     Indication: MUCOPOLYSACCHARIDOSIS IV
     Dosage: 30 MG, QW
     Route: 041
     Dates: start: 20140226
  3. PARACETAMOL [Concomitant]
     Active Substance: ACETAMINOPHEN
     Indication: PREMEDICATION

REACTIONS (6)
  - Bronchospasm [Unknown]
  - Respiratory disorder [Unknown]
  - Pyrexia [Unknown]
  - Cyanosis [Unknown]
  - Oxygen saturation decreased [Unknown]
  - Hypotension [Unknown]
